FAERS Safety Report 20729191 (Version 2)
Quarter: 2022Q2

REPORT INFORMATION
  Report Type: Spontaneous
  Country: US (occurrence: US)
  Receive Date: 20220420
  Receipt Date: 20220425
  Transmission Date: 20220721
  Serious: No
  Sender: FDA-Public Use
  Company Number: US-TEVA-2022-US-2021564

PATIENT
  Age: 58 Year
  Sex: Female
  Weight: 64.41 kg

DRUGS (1)
  1. AJOVY [Suspect]
     Active Substance: FREMANEZUMAB-VFRM
     Indication: Product used for unknown indication
     Dosage: 225/1.5 MG/ML
     Route: 065
     Dates: start: 2021

REACTIONS (5)
  - Rash [Recovered/Resolved]
  - Accidental exposure to product [Unknown]
  - Product dose omission in error [Not Recovered/Not Resolved]
  - Device defective [Unknown]
  - Device leakage [Not Recovered/Not Resolved]

NARRATIVE: CASE EVENT DATE: 20220201
